FAERS Safety Report 6118816-2 (Version None)
Quarter: 2009Q1

REPORT INFORMATION
  Report Type: 
  Country: None (occurrence: None)
  Receive Date: 20090316
  Receipt Date: 20090311
  Transmission Date: 20090719
  Serious: No
  Sender: FDA-Public Use
  Company Number: US-JNJFOC-20090303010

PATIENT
  Sex: Female
  Weight: 83.01 kg

DRUGS (13)
  1. FENTANYL TRANSDERMAL SYSTEM [Suspect]
     Indication: PAIN
     Route: 062
  2. CLARITIN [Concomitant]
     Indication: HYPERSENSITIVITY
     Dosage: DAILY
     Route: 048
  3. TUSSI TANNIC [Concomitant]
     Indication: HYPERSENSITIVITY
     Route: 048
  4. FLONASE [Concomitant]
     Indication: HYPERSENSITIVITY
     Dosage: 50 UG 2 SPRAYS
     Route: 045
  5. HYZAAR [Concomitant]
     Indication: HYPERTENSION
     Dosage: 100/12.5 MG
     Route: 048
  6. FIORINAL [Concomitant]
     Indication: MIGRAINE
     Dosage: TWO 50 MG
     Route: 048
  7. MIRAPEX [Concomitant]
     Indication: RESTLESS LEGS SYNDROME
     Dosage: 1 HOUR BEFORE BEDTIME
     Route: 048
  8. SYMLIN [Concomitant]
     Dosage: 1000UG/ML AT DINNER
     Route: 058
  9. SYMLIN [Concomitant]
     Dosage: 1000UG/ML AT LUNCH
     Route: 058
  10. SYMLIN [Concomitant]
     Indication: DIABETES MELLITUS
     Dosage: 1000 UG/ML AT BREAKFAST
     Route: 058
  11. METFORMIN HCL [Concomitant]
     Indication: DIABETES MELLITUS
     Route: 048
  12. LEVEMIR [Concomitant]
     Indication: DIABETES MELLITUS
     Dosage: SLIDING SCALE,100 UNITS/ML
     Route: 058
  13. NOVOLOG [Concomitant]
     Indication: DIABETES MELLITUS
     Dosage: SLIDING SCALE, 100 UNITS/ML BEFORE EACH MEAL
     Route: 058

REACTIONS (3)
  - DRUG DOSE OMISSION [None]
  - INSOMNIA [None]
  - NERVOUSNESS [None]
